FAERS Safety Report 13032995 (Version 2)
Quarter: 2017Q1

REPORT INFORMATION
  Report Type: Spontaneous
  Country: US (occurrence: US)
  Receive Date: 20161215
  Receipt Date: 20170202
  Transmission Date: 20170428
  Serious: Yes (Hospitalization)
  Sender: FDA-Public Use
  Company Number: US-ASTRAZENECA-2016SF31138

PATIENT
  Age: 59 Year
  Sex: Male
  Weight: 89.8 kg

DRUGS (10)
  1. PLAVIX [Concomitant]
     Active Substance: CLOPIDOGREL BISULFATE
     Indication: STENT PLACEMENT
     Route: 048
     Dates: start: 1999
  2. LOSARTAN. [Concomitant]
     Active Substance: LOSARTAN
     Indication: BLOOD PRESSURE ABNORMAL
     Route: 048
     Dates: start: 2016, end: 2016
  3. LASIX [Concomitant]
     Active Substance: FUROSEMIDE
     Indication: BLOOD PRESSURE ABNORMAL
     Dosage: 40.0MG ONCE/SINGLE ADMINISTRATION
     Route: 048
  4. LASIX [Concomitant]
     Active Substance: FUROSEMIDE
     Indication: BLOOD PRESSURE ABNORMAL
     Dosage: 80.0MG ONCE/SINGLE ADMINISTRATION
     Route: 048
  5. LASIX [Concomitant]
     Active Substance: FUROSEMIDE
     Indication: BLOOD PRESSURE ABNORMAL
     Route: 048
     Dates: start: 1992
  6. BAYER ASPIRIN [Concomitant]
     Active Substance: ASPIRIN
     Indication: STENT PLACEMENT
     Route: 048
     Dates: start: 1993
  7. LASIX [Concomitant]
     Active Substance: FUROSEMIDE
     Indication: BLOOD PRESSURE ABNORMAL
     Route: 048
     Dates: start: 20161105
  8. BYDUREON [Suspect]
     Active Substance: EXENATIDE
     Indication: TYPE 2 DIABETES MELLITUS
     Route: 058
     Dates: start: 201609, end: 20161105
  9. METOPROLOL. [Suspect]
     Active Substance: METOPROLOL
     Indication: BLOOD PRESSURE ABNORMAL
     Route: 048
     Dates: start: 2016, end: 2016
  10. METFORMIN [Concomitant]
     Active Substance: METFORMIN HYDROCHLORIDE
     Indication: TYPE 2 DIABETES MELLITUS
     Route: 048
     Dates: start: 2014

REACTIONS (18)
  - Ischaemia [Recovered/Resolved]
  - Dehydration [Unknown]
  - Gynaecomastia [Recovering/Resolving]
  - Feeling abnormal [Unknown]
  - Heart rate decreased [Recovering/Resolving]
  - Hypophagia [Recovering/Resolving]
  - Dizziness [Recovering/Resolving]
  - Pulmonary oedema [Recovering/Resolving]
  - Wheezing [Recovering/Resolving]
  - Blood potassium decreased [Recovered/Resolved]
  - Abdominal distension [Recovering/Resolving]
  - Hypotension [Recovering/Resolving]
  - Cardiac failure congestive [Not Recovered/Not Resolved]
  - Muscle disorder [Recovering/Resolving]
  - Incision site swelling [Recovering/Resolving]
  - Injection site nodule [Recovering/Resolving]
  - Cerebrovascular accident [Recovered/Resolved]
  - Nausea [Recovering/Resolving]

NARRATIVE: CASE EVENT DATE: 2016
